FAERS Safety Report 4535406-3 (Version None)
Quarter: 2004Q4

REPORT INFORMATION
  Report Type: 
  Country: None (occurrence: None)
  Receive Date: 20041214
  Receipt Date: 20040802
  Transmission Date: 20050328
  Serious: No
  Sender: FDA-Public Use
  Company Number: USA040874310

PATIENT
  Age: 57 Year
  Sex: Male
  Weight: 86 kg

DRUGS (2)
  1. CIALIS [Suspect]
     Dosage: 20 MG/1 DAY
     Dates: start: 20040712, end: 20040727
  2. DIOVAN [Concomitant]

REACTIONS (1)
  - OEDEMA PERIPHERAL [None]
